FAERS Safety Report 14100602 (Version 1)
Quarter: 2017Q4

REPORT INFORMATION
  Report Type: Report from Study
  Country: CA (occurrence: CA)
  Receive Date: 20171017
  Receipt Date: 20171017
  Transmission Date: 20180321
  Serious: Yes (Other)
  Sender: FDA-Public Use
  Company Number: CA-HLSUS-2017-CA-001060

PATIENT
  Age: 63 Year
  Sex: Female

DRUGS (1)
  1. CLOZARIL [Suspect]
     Active Substance: CLOZAPINE
     Route: 048
     Dates: start: 19980401, end: 20171009

REACTIONS (11)
  - Leukopenia [Unknown]
  - Neutropenia [Unknown]
  - Sepsis [Unknown]
  - Atrial fibrillation [Unknown]
  - Acute myocardial infarction [Unknown]
  - Bundle branch block right [Unknown]
  - Tachycardia [Unknown]
  - Hypotension [Unknown]
  - Left ventricular hypertrophy [Unknown]
  - Pneumonia [Unknown]
  - Electrocardiogram ST segment depression [Unknown]

NARRATIVE: CASE EVENT DATE: 20171009
